FAERS Safety Report 18726008 (Version 1)
Quarter: 2021Q1

REPORT INFORMATION
  Report Type: Report from Study
  Country: NL (occurrence: NL)
  Receive Date: 20210111
  Receipt Date: 20210111
  Transmission Date: 20210419
  Serious: Yes (Other)
  Sender: FDA-Public Use
  Company Number: NL-AMGEN-NLDSL2021002409

PATIENT
  Sex: Female

DRUGS (2)
  1. VITAMINE B12 [Concomitant]
     Active Substance: CYANOCOBALAMIN
  2. ARANESP [Suspect]
     Active Substance: DARBEPOETIN ALFA
     Indication: MYELODYSPLASTIC SYNDROME
     Dosage: 80 MICROGRAM, (0,4ML) QWK
     Route: 058

REACTIONS (1)
  - Injection site haematoma [Unknown]
